FAERS Safety Report 25496136 (Version 1)
Quarter: 2025Q2

REPORT INFORMATION
  Report Type: Spontaneous
  Country: PT (occurrence: PT)
  Receive Date: 20250630
  Receipt Date: 20250630
  Transmission Date: 20250717
  Serious: Yes (Other)
  Sender: NOVARTIS
  Company Number: PT-002147023-NVSC2025PT101724

PATIENT
  Sex: Female

DRUGS (1)
  1. SACUBITRIL\VALSARTAN [Suspect]
     Active Substance: SACUBITRIL\VALSARTAN
     Indication: Cardiac failure
     Route: 065

REACTIONS (5)
  - Anxiety [Unknown]
  - Suicidal ideation [Unknown]
  - Depersonalisation/derealisation disorder [Unknown]
  - Mental impairment [Unknown]
  - Emotional disorder [Unknown]
